FAERS Safety Report 23191695 (Version 12)
Quarter: 2025Q3

REPORT INFORMATION
  Report Type: Report from Study
  Country: GB (occurrence: GB)
  Receive Date: 20231116
  Receipt Date: 20250919
  Transmission Date: 20251021
  Serious: Yes (Hospitalization, Other)
  Sender: NOVARTIS
  Company Number: GB-002147023-NVSC2023GB078703

PATIENT
  Sex: Female

DRUGS (5)
  1. COSENTYX [Suspect]
     Active Substance: SECUKINUMAB
     Indication: Psoriasis
     Dosage: 300 MG, QMO
     Route: 065
  2. COSENTYX [Suspect]
     Active Substance: SECUKINUMAB
     Indication: Psoriatic arthropathy
     Dosage: 150 MG, QMO
     Route: 058
     Dates: start: 20230104
  3. COSENTYX [Suspect]
     Active Substance: SECUKINUMAB
     Route: 065
  4. COSENTYX [Suspect]
     Active Substance: SECUKINUMAB
     Route: 065
  5. COSENTYX [Suspect]
     Active Substance: SECUKINUMAB
     Dosage: 150 MG, QMO
     Route: 058

REACTIONS (21)
  - Acute kidney injury [Not Recovered/Not Resolved]
  - Extremity necrosis [Recovered/Resolved with Sequelae]
  - Cellulitis [Recovered/Resolved with Sequelae]
  - Lower respiratory tract infection [Recovering/Resolving]
  - Chronic kidney disease [Unknown]
  - End stage renal disease [Unknown]
  - Cough [Unknown]
  - Arthralgia [Not Recovered/Not Resolved]
  - Somnolence [Unknown]
  - Diabetic foot [Unknown]
  - Localised infection [Recovered/Resolved]
  - Pain [Unknown]
  - Generalised oedema [Unknown]
  - Anxiety [Unknown]
  - Malaise [Unknown]
  - Purulent discharge [Unknown]
  - Localised infection [Recovered/Resolved]
  - Lip swelling [Unknown]
  - Swelling [Unknown]
  - Infection [Unknown]
  - Inappropriate schedule of product administration [Unknown]
